FAERS Safety Report 6346910-X (Version None)
Quarter: 2009Q3

REPORT INFORMATION
  Report Type: 
  Country: None (occurrence: None)
  Receive Date: 20090909
  Receipt Date: 20090909
  Transmission Date: 20100115
  Serious: Yes (Death)
  Sender: FDA-Public Use
  Company Number: None

PATIENT
  Age: 44 Year
  Sex: Female
  Weight: 73.9363 kg

DRUGS (1)
  1. SORAFENIB 200MG TABS [Suspect]
     Indication: NEOPLASM
     Dosage: 200MG BID PO
     Route: 048
     Dates: start: 20090714, end: 20090809

REACTIONS (1)
  - DISEASE PROGRESSION [None]
